FAERS Safety Report 6448173-3 (Version None)
Quarter: 2009Q4

REPORT INFORMATION
  Report Type: 
  Country: None (occurrence: None)
  Receive Date: 20091116
  Receipt Date: 20091102
  Transmission Date: 20100525
  Serious: Yes (Hospitalization, Other)
  Sender: FDA-Public Use
  Company Number: 2009SP033948

PATIENT
  Sex: Male

DRUGS (1)
  1. ONCOTICE [Suspect]
     Indication: NEOPLASM MALIGNANT
     Dosage: INVES; INVES; INVES

REACTIONS (4)
  - HAEMATURIA [None]
  - NEOPLASM MALIGNANT [None]
  - NEOPLASM RECURRENCE [None]
  - RECURRENT CANCER [None]
